FAERS Safety Report 23753574 (Version 1)
Quarter: 2024Q2

REPORT INFORMATION
  Report Type: Spontaneous
  Country: FR (occurrence: FR)
  Receive Date: 20240417
  Receipt Date: 20240417
  Transmission Date: 20240717
  Serious: Yes (Other)
  Sender: FDA-Public Use
  Company Number: FR-MYLANLABS-2024M1033788

PATIENT
  Age: 91 Year
  Sex: Female

DRUGS (11)
  1. ARIXTRA [Suspect]
     Active Substance: FONDAPARINUX SODIUM
     Indication: Atrial fibrillation
     Dosage: 1 DOSAGE FORM, QD (1 INJECTION PER DAY)
     Route: 058
  2. ARIXTRA [Suspect]
     Active Substance: FONDAPARINUX SODIUM
     Indication: Thrombosis prophylaxis
  3. ACETAMINOPHEN [Concomitant]
     Active Substance: ACETAMINOPHEN
     Dosage: 1 GRAM, BID (1 GR/MORNING; 1 GR/EVENING)
     Route: 065
  4. CANDESARTAN [Concomitant]
     Active Substance: CANDESARTAN
     Dosage: 8 MILLIGRAM, QD (8 MG/MORNING)
     Route: 065
  5. CELIPROLOL [Concomitant]
     Active Substance: CELIPROLOL
     Dosage: 100 MILLIGRAM, BID (200 MG/DAY:100 MG/MORNING;100 MG/EVENING)
     Route: 065
  6. AMIODARONE [Concomitant]
     Active Substance: AMIODARONE
     Dosage: 1 DOSAGE FORM, QD (1 TABLET/MORNING)
     Route: 065
  7. FUROSEMIDE [Concomitant]
     Active Substance: FUROSEMIDE
     Dosage: 1 MILLIGRAM, QD (1 MG/MORNING)
     Route: 065
  8. NICARDIPINE HYDROCHLORIDE [Concomitant]
     Active Substance: NICARDIPINE HYDROCHLORIDE
     Dosage: 50 UNK, BID (1 MORNING; 1 EVENING)
     Route: 065
  9. URAPIDIL [Concomitant]
     Active Substance: URAPIDIL
     Dosage: 1 MILLIGRAM, QD (1 MG IN THE MORNING)
     Route: 065
  10. CHOLECALCIFEROL [Concomitant]
     Active Substance: CHOLECALCIFEROL
     Dosage: 1 DOSAGE FORM, MONTHLY (1 SOLUTION (AMPOULE) EVERY 30 DAYS)
     Route: 065
  11. XARELTO [Concomitant]
     Active Substance: RIVAROXABAN
     Dosage: UNK
     Route: 065

REACTIONS (3)
  - Anaemia [Unknown]
  - Off label use [Unknown]
  - Syringe issue [Unknown]

NARRATIVE: CASE EVENT DATE: 20240328
